FAERS Safety Report 5456302-3 (Version None)
Quarter: 2007Q3

REPORT INFORMATION
  Report Type: 
  Country: None (occurrence: None)
  Receive Date: 20070918
  Receipt Date: 20070917
  Transmission Date: 20080115
  Serious: Yes (Other)
  Sender: FDA-Public Use
  Company Number: A0682004A

PATIENT
  Age: 23 Year
  Sex: Male

DRUGS (6)
  1. ALLI [Suspect]
     Indication: WEIGHT CONTROL
     Route: 048
  2. ZYRTEC-D [Concomitant]
  3. ASTELIN [Concomitant]
  4. NASALCROM [Concomitant]
  5. SINGULAIR [Concomitant]
  6. CENTRUM [Concomitant]

REACTIONS (7)
  - ABDOMINAL PAIN [None]
  - ABDOMINAL PAIN UPPER [None]
  - ANAL DISCOMFORT [None]
  - DIARRHOEA [None]
  - FLATULENCE [None]
  - RECTAL DISCHARGE [None]
  - RECTAL HAEMORRHAGE [None]
